FAERS Safety Report 8785236 (Version 1)
Quarter: 2012Q4

REPORT INFORMATION
  Report Type: 
  Country: US (occurrence: US)
  Receive Date: 20120914
  Receipt Date: 20120914
  Transmission Date: 20130627
  Serious: Yes (Hospitalization)
  Sender: FDA-Public Use
  Company Number: US-BAYER-2012-094867

PATIENT
  Age: 39 Year
  Sex: Female
  Weight: 106.1 kg

DRUGS (9)
  1. GIANVI [Suspect]
  2. FOLIC ACID W/VITAMIN B12 [Concomitant]
     Dosage: 1 Tablet daily
  3. MULTIVITAMIN AND MINERAL SUPPLEMENT [Concomitant]
     Dosage: 1 Tablet daily
  4. IMITREX [Concomitant]
  5. NORTRIPTYLINE HCL [Concomitant]
     Dosage: 25 mg, daily
  6. OMEPRAZOLE [Concomitant]
     Dosage: 40 mg, daily
  7. TYLENOL EXTRA STRENGTH [Concomitant]
     Dosage: As Needed
  8. ESOMEPRAZOLE W/NAPROXEN [Concomitant]
     Dosage: UNK; 500 -20 mg daily
  9. ZEGERID [Concomitant]
     Dosage: UNK

REACTIONS (1)
  - Intracranial venous sinus thrombosis [None]
